FAERS Safety Report 10157111 (Version 1)
Quarter: 2014Q2

REPORT INFORMATION
  Report Type: Spontaneous
  Country: US (occurrence: US)
  Receive Date: 20140506
  Receipt Date: 20140506
  Transmission Date: 20141212
  Serious: No
  Sender: FDA-Public Use
  Company Number: US-BAYER-2014-062497

PATIENT
  Age: 31 Year
  Sex: Male
  Weight: 113 kg

DRUGS (2)
  1. ALEVE CAPLET [Suspect]
     Dosage: 1 DF, BID
     Route: 048
     Dates: start: 201402, end: 201402
  2. ALEVE CAPLET [Suspect]
     Dosage: UNK
     Route: 048
     Dates: start: 201404, end: 20140424

REACTIONS (5)
  - Peripheral swelling [Not Recovered/Not Resolved]
  - Rash [Recovered/Resolved]
  - Pruritus [Recovered/Resolved]
  - Peripheral swelling [Recovered/Resolved]
  - Intentional product misuse [Recovered/Resolved]
